FAERS Safety Report 5162768-9 (Version None)
Quarter: 2006Q4

REPORT INFORMATION
  Report Type: 
  Country: None (occurrence: None)
  Receive Date: 20061121
  Receipt Date: 20061114
  Transmission Date: 20070319
  Serious: Yes (Other)
  Sender: FDA-Public Use
  Company Number: US-2006-030968

PATIENT
  Age: 30 Year
  Sex: Female
  Weight: 79 kg

DRUGS (2)
  1. MIRENA [Suspect]
     Indication: CONTRACEPTION
     Dosage: 20 UG/DAY, CONT, INTRA-UTERINE
     Route: 015
     Dates: start: 20060927
  2. PRENATAL VITAMINS (NICOTINIC ACID, RETINOL, MINERALS NOS, VITAMIN D NO [Concomitant]

REACTIONS (4)
  - FUNGAL INFECTION [None]
  - HYPERTENSION [None]
  - SYNCOPE [None]
  - VAGINAL HAEMORRHAGE [None]
